FAERS Safety Report 6149579-2 (Version None)
Quarter: 2009Q2

REPORT INFORMATION
  Report Type: 
  Country: None (occurrence: None)
  Receive Date: 20090406
  Receipt Date: 20090406
  Transmission Date: 20091009
  Serious: Yes (Life-Threatening, Hospitalization)
  Sender: FDA-Public Use
  Company Number: None

PATIENT
  Age: 35 Year
  Sex: Female
  Weight: 96.6162 kg

DRUGS (3)
  1. PERPHENAZINE [Suspect]
     Indication: ANXIETY
     Dosage: 2MG MORNING PO; 4 MG BEDTIME PO
     Route: 048
     Dates: start: 20090327, end: 20090331
  2. PERPHENAZINE [Suspect]
     Indication: BIPOLAR DISORDER
     Dosage: 2MG MORNING PO; 4 MG BEDTIME PO
     Route: 048
     Dates: start: 20090327, end: 20090331
  3. PERPHENAZINE [Suspect]
     Indication: SCHIZOAFFECTIVE DISORDER
     Dosage: 2MG MORNING PO; 4 MG BEDTIME PO
     Route: 048
     Dates: start: 20090327, end: 20090331

REACTIONS (8)
  - AGITATION [None]
  - ANXIETY [None]
  - APATHY [None]
  - DEPRESSION [None]
  - EMOTIONAL DISORDER [None]
  - HYPERSOMNIA [None]
  - INSOMNIA [None]
  - NEGATIVE THOUGHTS [None]
